FAERS Safety Report 7558453-6 (Version None)
Quarter: 2011Q2

REPORT INFORMATION
  Report Type: 
  Country: None (occurrence: None)
  Receive Date: 20110620
  Receipt Date: 20110617
  Transmission Date: 20111010
  Serious: Yes (Life-Threatening, Hospitalization, Disabling)
  Sender: FDA-Public Use
  Company Number: FR-GILEAD-2011-0040290

PATIENT
  Sex: Female
  Weight: 41 kg

DRUGS (3)
  1. TRUVADA [Suspect]
     Indication: HIV INFECTION
  2. RITONAVIR [Concomitant]
  3. PREZISTA [Concomitant]

REACTIONS (3)
  - RENAL TUBULAR NECROSIS [None]
  - RENAL FAILURE ACUTE [None]
  - DIALYSIS [None]
